FAERS Safety Report 5403916-2 (Version None)
Quarter: 2007Q3

REPORT INFORMATION
  Report Type: 
  Country: None (occurrence: None)
  Receive Date: 20070706
  Receipt Date: 20030922
  Transmission Date: 20080115
  Serious: Yes (Other)
  Sender: FDA-Public Use
  Company Number: 471048

PATIENT
  Age: 41 Year
  Sex: Female

DRUGS (5)
  1. MYCOPHENOLATE MOFETIL [Suspect]
     Indication: NECROTISING SCLERITIS
     Dosage: 2 GRAM DAILY
  2. PREDNISONE TAB [Concomitant]
  3. CYCLOSPORINE [Concomitant]
  4. METHOTREXATE [Concomitant]
  5. CYCLOPHOSPHAMIDE [Concomitant]

REACTIONS (5)
  - CYSTITIS HAEMORRHAGIC [None]
  - DIARRHOEA [None]
  - HEPATIC ENZYME ABNORMAL [None]
  - HYPERTENSION [None]
  - PARAESTHESIA [None]
